FAERS Safety Report 12213010 (Version 1)
Quarter: 2016Q1

REPORT INFORMATION
  Report Type: Spontaneous
  Country: PL (occurrence: PL)
  Receive Date: 20160328
  Receipt Date: 20160328
  Transmission Date: 20160526
  Serious: Yes (Hospitalization)
  Sender: FDA-Public Use
  Company Number: PL-ACCORD-039119

PATIENT
  Age: 58 Year
  Sex: Male

DRUGS (3)
  1. ETOPOSIDE. [Suspect]
     Active Substance: ETOPOSIDE
     Indication: NEUROENDOCRINE CARCINOMA METASTATIC
     Dosage: EP REGIMEN, DAYS 1-3?FIRST CYCLE
  2. CISPLATIN. [Suspect]
     Active Substance: CISPLATIN
     Indication: NEUROENDOCRINE CARCINOMA METASTATIC
     Dosage: EP REGIMEN, DAYS 1-3?FIRST CYCLE
  3. METOPROLOL. [Concomitant]
     Active Substance: METOPROLOL
     Indication: TACHYCARDIA
     Dosage: OVER TWO DAYS

REACTIONS (3)
  - Drug ineffective [Unknown]
  - Sinus bradycardia [Recovered/Resolved]
  - Off label use [Unknown]
